FAERS Safety Report 5151030-6 (Version None)
Quarter: 2006Q4

REPORT INFORMATION
  Report Type: 
  Country: None (occurrence: None)
  Receive Date: 20061115
  Receipt Date: 20061109
  Transmission Date: 20070319
  Serious: Yes (Hospitalization)
  Sender: FDA-Public Use
  Company Number: 2006SE06034

PATIENT
  Age: 1060 Month
  Sex: Male
  Weight: 57 kg

DRUGS (5)
  1. BLOPRESS [Suspect]
     Indication: HYPERTENSION
     Route: 048
     Dates: start: 20060829, end: 20060928
  2. PANTOSIN [Concomitant]
     Indication: CONSTIPATION
     Route: 048
  3. MAGNESIUM OXIDE [Concomitant]
     Indication: CONSTIPATION
     Route: 048
  4. MYSLEE [Concomitant]
     Indication: INSOMNIA
     Route: 048
  5. PURSENNIDE [Concomitant]
     Indication: CONSTIPATION
     Route: 048

REACTIONS (1)
  - INTERSTITIAL LUNG DISEASE [None]
